FAERS Safety Report 19251794 (Version 1)
Quarter: 2021Q2

REPORT INFORMATION
  Report Type: Other
  Country: JP (occurrence: JP)
  Receive Date: 20210513
  Receipt Date: 20210513
  Transmission Date: 20210717
  Serious: Yes (Other)
  Sender: FDA-Public Use
  Company Number: JP-ROCHE-2823889

PATIENT

DRUGS (2)
  1. BEVACIZUMAB. [Suspect]
     Active Substance: BEVACIZUMAB
     Indication: BREAST CANCER METASTATIC
     Dosage: DAYS 1 AND 15, EVERY 4 WEEKS
     Route: 042
  2. PACLITAXEL. [Suspect]
     Active Substance: PACLITAXEL
     Indication: BREAST CANCER METASTATIC
     Dosage: 80 MG/M2 OR 90 MG/M2, ON DAYS 1, 8, AND 15.
     Route: 042

REACTIONS (17)
  - Leukopenia [Unknown]
  - Gastric haemorrhage [Unknown]
  - Neutropenia [Unknown]
  - Hypersensitivity [Unknown]
  - Thrombocytopenia [Unknown]
  - Arthralgia [Unknown]
  - Pneumonia [Unknown]
  - Fatigue [Unknown]
  - Myalgia [Unknown]
  - Hypertension [Unknown]
  - Neuropathy peripheral [Unknown]
  - Hepatic cirrhosis [Unknown]
  - Dysgeusia [Unknown]
  - Pneumothorax [Unknown]
  - Anaemia [Unknown]
  - Epistaxis [Unknown]
  - Pneumocystis jirovecii pneumonia [Unknown]
